FAERS Safety Report 8845626 (Version 3)
Quarter: 2012Q4

REPORT INFORMATION
  Report Type: 
  Country: JP (occurrence: JP)
  Receive Date: 20121017
  Receipt Date: 20121109
  Transmission Date: 20130627
  Serious: Yes (Other)
  Sender: FDA-Public Use
  Company Number: JP-B.I. PHARMACEUTICALS,INC./RIDGEFIELD-2012-BP-25571NB

PATIENT
  Age: 79 None
  Sex: Female
  Weight: 39 kg

DRUGS (7)
  1. MICARDIS [Suspect]
     Indication: HYPERTENSION
     Route: 048
     Dates: start: 20120402, end: 20121009
  2. EXCELASE [Concomitant]
     Route: 048
  3. GASMOTIN [Concomitant]
     Indication: GASTRITIS
     Route: 048
  4. SELBEX [Concomitant]
     Indication: GASTRITIS
     Route: 048
  5. ULCERLMIN [Concomitant]
     Indication: GASTRITIS
     Dosage: 3 g
     Route: 048
  6. MIYA-BM [Concomitant]
     Indication: GASTRITIS
     Dosage: 3 g
     Route: 048
  7. ADONA [Concomitant]
     Dosage: 90 mg
     Route: 048

REACTIONS (2)
  - Purpura [Recovered/Resolved]
  - Erythema [Recovered/Resolved]
